FAERS Safety Report 7123395-7 (Version None)
Quarter: 2010Q4

REPORT INFORMATION
  Report Type: 
  Country: None (occurrence: None)
  Receive Date: 20101125
  Receipt Date: 20101118
  Transmission Date: 20110411
  Serious: No
  Sender: FDA-Public Use
  Company Number: US-BIOGENIDEC-2010BI041191

PATIENT
  Sex: Female

DRUGS (5)
  1. TYSABRI [Suspect]
     Indication: MULTIPLE SCLEROSIS
     Route: 042
     Dates: start: 20100420
  2. TYSABRI [Suspect]
     Route: 042
     Dates: end: 20050201
  3. AVONEX [Concomitant]
     Indication: MULTIPLE SCLEROSIS
     Route: 030
     Dates: start: 19961101, end: 20100107
  4. STEROIDS (NOS) [Concomitant]
  5. ANTIBIOTICS (NOS) [Concomitant]

REACTIONS (5)
  - BLADDER DISORDER [None]
  - CANDIDIASIS [None]
  - EMOTIONAL DISORDER [None]
  - FATIGUE [None]
  - FUNGAL INFECTION [None]
